FAERS Safety Report 9185594 (Version 1)
Quarter: 2013Q1

REPORT INFORMATION
  Report Type: Spontaneous
  Country: US (occurrence: US)
  Receive Date: 20130325
  Receipt Date: 20130325
  Transmission Date: 20140127
  Serious: No
  Sender: FDA-Public Use
  Company Number: US-BIOGENIDEC-2013BI026403

PATIENT
  Age: 52 Year
  Sex: Male

DRUGS (1)
  1. AVONEX [Suspect]
     Indication: MULTIPLE SCLEROSIS
     Route: 030
     Dates: start: 20130221

REACTIONS (4)
  - Injection site haemorrhage [Recovered/Resolved]
  - Erythema [Not Recovered/Not Resolved]
  - Vascular injury [Unknown]
  - Fear of injection [Recovered/Resolved]
